FAERS Safety Report 13241542 (Version 3)
Quarter: 2018Q2

REPORT INFORMATION
  Report Type: Report from Study
  Country: FR (occurrence: FR)
  Receive Date: 20170216
  Receipt Date: 20180411
  Transmission Date: 20180711
  Serious: Yes (Other)
  Sender: FDA-Public Use
  Company Number: FR-EXELIXIS-XL18417008245

PATIENT
  Age: 18 Year
  Sex: Male

DRUGS (1)
  1. XL184 [Suspect]
     Active Substance: CABOZANTINIB
     Indication: EWING^S SARCOMA
     Dosage: 40 MG, QD
     Route: 048
     Dates: start: 20161014, end: 20170120

REACTIONS (1)
  - Pneumomediastinum [Recovered/Resolved]

NARRATIVE: CASE EVENT DATE: 20170121
